FAERS Safety Report 4851853-4 (Version None)
Quarter: 2005Q4

REPORT INFORMATION
  Report Type: 
  Country: None (occurrence: None)
  Receive Date: 20051125
  Receipt Date: 20050114
  Transmission Date: 20060501
  Serious: Yes (Other)
  Sender: FDA-Public Use
  Company Number: 2005015167

PATIENT
  Age: 80 Year
  Sex: Male
  Weight: 78.0187 kg

DRUGS (10)
  1. DOFETILIDE (DOFETILIDE) [Suspect]
     Indication: ATRIAL FIBRILLATION
     Dosage: 0.25 MG (0.125 MG, TWICE DAILY)
     Dates: start: 20050101
  2. ASPIRIN [Concomitant]
  3. METOPROLOL SUCCINATE [Concomitant]
  4. TERAZOSIN HYDROCHLORIDE [Concomitant]
  5. DYAZIDE [Concomitant]
  6. ATORVASTATIN CALCIUM [Concomitant]
  7. NAPROXEN [Concomitant]
  8. VITAMINS (VITAMINS) [Concomitant]
  9. GLUCOSAMINE (GLUCOSAMINE) [Concomitant]
  10. CHONDROITIN SULFATE (CHONDROITIN SULFATE) [Concomitant]

REACTIONS (3)
  - ARRHYTHMIA [None]
  - STOMACH DISCOMFORT [None]
  - TACHYCARDIA [None]
